FAERS Safety Report 4931096-6 (Version None)
Quarter: 2006Q1

REPORT INFORMATION
  Report Type: 
  Country: None (occurrence: None)
  Receive Date: 20060302
  Receipt Date: 20050117
  Transmission Date: 20060701
  Serious: Yes (Death, Hospitalization, Other)
  Sender: FDA-Public Use
  Company Number: US-MERCK-0501USA02355

PATIENT
  Age: 78 Year
  Sex: Female

DRUGS (2)
  1. VIOXX [Suspect]
     Indication: OSTEOARTHRITIS
     Route: 065
     Dates: start: 20000501, end: 20040623
  2. HYDROCHLOROTHIAZIDE AND TRIAMTERENE [Concomitant]
     Route: 065

REACTIONS (17)
  - ACUTE RESPIRATORY FAILURE [None]
  - ATROPHIC VULVOVAGINITIS [None]
  - CARDIOVASCULAR DISORDER [None]
  - CEREBROVASCULAR ACCIDENT [None]
  - COLONIC POLYP [None]
  - CONSTIPATION [None]
  - DIVERTICULUM [None]
  - DYSURIA [None]
  - ERYTHEMA [None]
  - GENITAL PRURITUS FEMALE [None]
  - HYPERTENSION [None]
  - HYPOKALAEMIA [None]
  - INSOMNIA [None]
  - OESOPHAGEAL STENOSIS [None]
  - OSTEOARTHRITIS [None]
  - URINARY TRACT INFECTION [None]
  - URTICARIA [None]
